FAERS Safety Report 9104332 (Version 1)
Quarter: 2013Q1

REPORT INFORMATION
  Report Type: Spontaneous
  Country: US (occurrence: US)
  Receive Date: 20130219
  Receipt Date: 20130219
  Transmission Date: 20140127
  Serious: No
  Sender: FDA-Public Use
  Company Number: US-BIOGENIDEC-155461

PATIENT
  Age: 42 Year
  Sex: Female
  Weight: 93 kg

DRUGS (10)
  1. AVONEX [Suspect]
     Indication: MULTIPLE SCLEROSIS
     Route: 030
     Dates: start: 20010928, end: 20010928
  2. AVONEX [Suspect]
     Indication: MULTIPLE SCLEROSIS
     Route: 030
     Dates: start: 20011005, end: 20011005
  3. AVONEX [Suspect]
     Indication: MULTIPLE SCLEROSIS
     Route: 030
     Dates: start: 20011012
  4. AVONEX [Suspect]
     Indication: MULTIPLE SCLEROSIS
     Route: 030
     Dates: end: 20091202
  5. AVONEX [Suspect]
     Indication: MULTIPLE SCLEROSIS
     Route: 030
     Dates: start: 20091202, end: 20101101
  6. AVONEX [Suspect]
     Indication: MULTIPLE SCLEROSIS
     Route: 030
     Dates: start: 20130201
  7. SYNTHROID [Concomitant]
     Indication: HYPOTHYROIDISM
  8. ALLEGRA-D [Concomitant]
     Indication: MULTIPLE ALLERGIES
  9. PREDNISONE [Concomitant]
     Indication: MULTIPLE SCLEROSIS RELAPSE
     Dates: start: 200109, end: 200110
  10. VITAMIN B12 INJECTIONS [Concomitant]
     Indication: PERNICIOUS ANAEMIA

REACTIONS (9)
  - Nasopharyngitis [Not Recovered/Not Resolved]
  - Lethargy [Unknown]
  - Swelling face [Not Recovered/Not Resolved]
  - Contusion [Not Recovered/Not Resolved]
  - Spider naevus [Not Recovered/Not Resolved]
  - Insomnia [Recovered/Resolved]
  - Influenza like illness [Recovered/Resolved]
  - Injection site reaction [Recovered/Resolved]
  - Feeling abnormal [Recovered/Resolved]
